FAERS Safety Report 9158689 (Version 1)
Quarter: 2013Q1

REPORT INFORMATION
  Report Type: Spontaneous
  Country: US (occurrence: US)
  Receive Date: 20130312
  Receipt Date: 20130312
  Transmission Date: 20140127
  Serious: Yes (Life-Threatening, Hospitalization, Other)
  Sender: FDA-Public Use
  Company Number: US-AMGEN-USASP2013014532

PATIENT
  Age: 76 Year
  Sex: Female

DRUGS (4)
  1. PROLIA [Suspect]
     Indication: OSTEOPOROSIS POSTMENOPAUSAL
     Dosage: 60 MG, Q6MO
     Dates: start: 20110831
  2. LOSARTAN [Concomitant]
  3. ASPIRIN [Concomitant]
     Dosage: 98 MG, UNK
  4. DILANTIN                           /00017401/ [Concomitant]

REACTIONS (6)
  - Convulsion [Unknown]
  - Memory impairment [Unknown]
  - Weight decreased [Unknown]
  - Fatigue [Unknown]
  - Hypotension [Unknown]
  - Colour blindness acquired [Unknown]
